FAERS Safety Report 4284041-3 (Version None)
Quarter: 2004Q1

REPORT INFORMATION
  Report Type: 
  Country: None (occurrence: None)
  Receive Date: 20040202
  Receipt Date: 20040202
  Transmission Date: 20041129
  Serious: Yes (Hospitalization)
  Sender: FDA-Public Use
  Company Number: None

PATIENT
  Sex: Female
  Weight: 58.9676 kg

DRUGS (3)
  1. OXAPROZIN 600 MG DR REDDYS [Suspect]
     Indication: INFLAMMATION
     Dosage: 2 TABLET DAILY ORAL
     Route: 048
     Dates: start: 20040101, end: 20040123
  2. LEVOXYL [Concomitant]
  3. MONISTAT [Concomitant]

REACTIONS (15)
  - BITE [None]
  - CANDIDIASIS [None]
  - DIARRHOEA [None]
  - DYSPNOEA [None]
  - EYE DISCHARGE [None]
  - EYE SWELLING [None]
  - GENITAL PRURITUS FEMALE [None]
  - HYPERPHAGIA [None]
  - HYPERSENSITIVITY [None]
  - ORAL SOFT TISSUE DISORDER [None]
  - PRURITUS ANI [None]
  - PYREXIA [None]
  - RASH ERYTHEMATOUS [None]
  - SWELLING FACE [None]
  - THROAT TIGHTNESS [None]
